FAERS Safety Report 6613756-4 (Version None)
Quarter: 2010Q1

REPORT INFORMATION
  Report Type: 
  Country: None (occurrence: None)
  Receive Date: 20100225
  Receipt Date: 20100210
  Transmission Date: 20100710
  Serious: Yes (Life-Threatening)
  Sender: FDA-Public Use
  Company Number: 2010SCPR000338

PATIENT
  Age: 38 Year
  Sex: Female

DRUGS (8)
  1. IBUPROFEN [Suspect]
     Indication: INFLUENZA
     Dosage: 600 MG, 400 MG, BID
     Dates: start: 20060601, end: 20060801
  2. IBUPROFEN [Suspect]
     Indication: INFLUENZA LIKE ILLNESS
     Dosage: 600 MG, 400 MG, BID
     Dates: start: 20060601, end: 20060801
  3. IBUPROFEN [Suspect]
     Indication: INFLUENZA
     Dosage: 600 MG, 400 MG, BID
     Dates: start: 20070301, end: 20070101
  4. IBUPROFEN [Suspect]
     Indication: INFLUENZA LIKE ILLNESS
     Dosage: 600 MG, 400 MG, BID
     Dates: start: 20070301, end: 20070101
  5. ALPRAZOLAM [Concomitant]
  6. INTERFERON BETA-1A (INTERFERON BETA-1A) [Concomitant]
  7. INTERFERON BETA-1A (INTERFERON BETA-1A) INJECTION [Concomitant]
  8. GLATIRAMER ACETATE (GLATIRAMER ACETATE) [Concomitant]

REACTIONS (5)
  - DISEASE RECURRENCE [None]
  - HEPATIC FAILURE [None]
  - HEPATITIS [None]
  - HEPATOTOXICITY [None]
  - INFLUENZA [None]
